FAERS Safety Report 5068667-5 (Version None)
Quarter: 2006Q3

REPORT INFORMATION
  Report Type: 
  Country: None (occurrence: None)
  Receive Date: 20060802
  Receipt Date: 20060201
  Transmission Date: 20061208
  Serious: No
  Sender: FDA-Public Use
  Company Number: US-BRISTOL-MYERS SQUIBB COMPANY-13268487

PATIENT
  Sex: Female

DRUGS (6)
  1. COUMADIN [Suspect]
     Indication: STENT PLACEMENT
     Dates: start: 20051001
  2. LIPITOR [Concomitant]
  3. VERAPAMIL [Concomitant]
  4. PRILOSEC [Concomitant]
  5. ASPIRIN [Concomitant]
  6. CATAPRES [Concomitant]

REACTIONS (2)
  - ALOPECIA [None]
  - SEBORRHOEIC DERMATITIS [None]
